FAERS Safety Report 8562488-4 (Version None)
Quarter: 2012Q3

REPORT INFORMATION
  Report Type: 
  Country: None (occurrence: None)
  Receive Date: 20120802
  Receipt Date: 20120713
  Transmission Date: 20120928
  Serious: No
  Sender: FDA-Public Use
  Company Number: US-AMGEN-USASP2011063907

PATIENT
  Sex: Female
  Weight: 30 kg

DRUGS (6)
  1. NAPROXEN [Concomitant]
     Indication: JUVENILE ARTHRITIS
     Dosage: 250 MG, BID
     Route: 048
     Dates: start: 20110630
  2. PREVACID [Concomitant]
     Indication: GASTROOESOPHAGEAL REFLUX DISEASE
     Dosage: 15 MG, QD
     Route: 048
  3. FOLIC ACID [Concomitant]
     Indication: JUVENILE ARTHRITIS
     Dosage: 1 MG, QD
     Route: 048
     Dates: start: 20110616
  4. ENBREL [Suspect]
     Indication: JUVENILE ARTHRITIS
     Dosage: 25 MG, QWK
     Route: 058
     Dates: start: 20110616
  5. SINGULAIR [Concomitant]
     Indication: ASTHMA
     Dosage: 5 MG, QD
     Route: 048
  6. METHOTREXATE [Concomitant]
     Indication: JUVENILE ARTHRITIS
     Dosage: 25 MG, QWK
     Route: 058
     Dates: start: 20110616

REACTIONS (3)
  - INJECTION SITE HAEMATOMA [None]
  - CONTUSION [None]
  - ANXIETY [None]
